FAERS Safety Report 25334663 (Version 1)
Quarter: 2025Q2

REPORT INFORMATION
  Report Type: Spontaneous
  Country: US (occurrence: US)
  Receive Date: 20250520
  Receipt Date: 20250520
  Transmission Date: 20250717
  Serious: Yes (Hospitalization, Other)
  Sender: ACCORD
  Company Number: US-Accord-485304

PATIENT
  Age: 57 Year
  Sex: Female

DRUGS (5)
  1. MITOMYCIN [Suspect]
     Active Substance: MITOMYCIN
     Indication: Anal cancer
  2. CAPECITABINE [Concomitant]
     Active Substance: CAPECITABINE
     Indication: Anal cancer
  3. FAMOTIDINE [Concomitant]
     Active Substance: FAMOTIDINE
  4. HEPARIN [Concomitant]
     Active Substance: HEPARIN SODIUM
     Route: 058
  5. LEVOTHYROXINE [Concomitant]
     Active Substance: LEVOTHYROXINE

REACTIONS (1)
  - Thrombotic microangiopathy [Recovering/Resolving]
